FAERS Safety Report 12461512 (Version 1)
Quarter: 2016Q2

REPORT INFORMATION
  Report Type: Spontaneous
  Country: US (occurrence: US)
  Receive Date: 20160613
  Receipt Date: 20160613
  Transmission Date: 20160815
  Serious: No
  Sender: FDA-Public Use
  Company Number: US-BIOCOMPATIBLES UK LTD-BTG00669

PATIENT

DRUGS (1)
  1. VARITHENA [Suspect]
     Active Substance: POLIDOCANOL
     Indication: VARICOSE VEIN
     Dosage: 10 ML, SINGLE
     Route: 042
     Dates: start: 20160411

REACTIONS (2)
  - Skin reaction [Unknown]
  - Application site erythema [Unknown]

NARRATIVE: CASE EVENT DATE: 20160411
